FAERS Safety Report 9347978 (Version 5)
Quarter: 2016Q2

REPORT INFORMATION
  Report Type: Spontaneous
  Country: US (occurrence: US)
  Receive Date: 20130614
  Receipt Date: 20160530
  Transmission Date: 20160815
  Serious: Yes (Disabling, Other)
  Sender: FDA-Public Use
  Company Number: US-JNJFOC-20130601043

PATIENT
  Sex: Female

DRUGS (3)
  1. PREDNISONE. [Suspect]
     Active Substance: PREDNISONE
     Indication: BRONCHITIS
     Route: 065
  2. LEVAQUIN [Suspect]
     Active Substance: LEVOFLOXACIN
     Indication: BRONCHITIS
     Route: 065
  3. LEVAQUIN [Suspect]
     Active Substance: LEVOFLOXACIN
     Indication: BRONCHITIS
     Route: 065

REACTIONS (29)
  - Visual acuity reduced [Unknown]
  - Electrocution [Unknown]
  - Bladder disorder [Unknown]
  - Mitochondrial DNA depletion [Unknown]
  - Peripheral sensory neuropathy [Unknown]
  - Drug ineffective [Unknown]
  - Bedridden [Unknown]
  - Hypotonia [Unknown]
  - Gastrointestinal disorder [Unknown]
  - Macular rupture [Unknown]
  - Spinal disorder [Unknown]
  - Paraesthesia [Unknown]
  - Burning sensation [Unknown]
  - Electrocardiogram QT interval abnormal [Unknown]
  - Abdominal distension [Unknown]
  - Cardiac disorder [Unknown]
  - Periarthritis [Unknown]
  - Heart rate increased [Unknown]
  - Dyspnoea [Unknown]
  - Amyotrophic lateral sclerosis [Unknown]
  - Hypokinesia [Unknown]
  - Blindness unilateral [Unknown]
  - Toxicity to various agents [Unknown]
  - Gait disturbance [Unknown]
  - Weight decreased [Unknown]
  - Adverse event [Unknown]
  - Nerve injury [Unknown]
  - Tendon injury [Unknown]
  - Palpitations [Unknown]
